FAERS Safety Report 11392497 (Version 2)
Quarter: 2015Q3

REPORT INFORMATION
  Report Type: Spontaneous
  Country: JP (occurrence: JP)
  Receive Date: 20150818
  Receipt Date: 20150828
  Transmission Date: 20151125
  Serious: Yes (Hospitalization)
  Sender: FDA-Public Use
  Company Number: PHHY2015JP099199

PATIENT

DRUGS (1)
  1. RIVASTACH [Suspect]
     Active Substance: RIVASTIGMINE
     Indication: DEMENTIA ALZHEIMER^S TYPE
     Dosage: 9.5 MG/24 HOURS (PATCH 10 CM2, 18 MG DAILY RIVASTIGMINE BASE)
     Route: 062

REACTIONS (2)
  - Aggression [Unknown]
  - Depressed level of consciousness [Unknown]
